FAERS Safety Report 11919876 (Version 1)
Quarter: 2016Q1

REPORT INFORMATION
  Report Type: Spontaneous
  Country: US (occurrence: US)
  Receive Date: 20160115
  Receipt Date: 20160115
  Transmission Date: 20160526
  Serious: Yes (Other)
  Sender: FDA-Public Use
  Company Number: US-ACTAVIS-2016-00364

PATIENT
  Age: 19 Year
  Sex: Male

DRUGS (4)
  1. LEVETIRACETAM (WATSON LABORATORIES) [Suspect]
     Active Substance: LEVETIRACETAM
     Dosage: 2000 MG, UNK
     Route: 042
  2. LORAZEPAM. [Concomitant]
     Active Substance: LORAZEPAM
     Indication: EPILEPSY
     Dosage: 2 MG, UNK
     Route: 042
  3. LEVETIRACETAM (WATSON LABORATORIES) [Suspect]
     Active Substance: LEVETIRACETAM
     Indication: EPILEPSY
     Dosage: 500 MG, DAILY
     Route: 048
  4. OXCARBAZEPINE. [Concomitant]
     Active Substance: OXCARBAZEPINE
     Indication: EPILEPSY
     Dosage: 1200 MG, UNK
     Route: 065

REACTIONS (2)
  - Renal impairment [Recovered/Resolved]
  - Rhabdomyolysis [Recovered/Resolved]
